FAERS Safety Report 10234992 (Version 3)
Quarter: 2014Q2

REPORT INFORMATION
  Report Type: Report from Study
  Country: US (occurrence: US)
  Receive Date: 20140613
  Receipt Date: 20140623
  Transmission Date: 20141212
  Serious: Yes (Hospitalization)
  Sender: FDA-Public Use
  Company Number: US-JNJFOC-20140604308

PATIENT
  Age: 55 Year
  Sex: Female
  Weight: 46.72 kg

DRUGS (10)
  1. REMICADE [Suspect]
     Indication: RHEUMATOID ARTHRITIS
     Dosage: 2 YEARS AGO
     Route: 042
  2. REMICADE [Suspect]
     Indication: RHEUMATOID ARTHRITIS
     Dosage: ALSO REPORTED AS 06-MAY-2014
     Route: 042
     Dates: start: 20140508
  3. REMICADE [Suspect]
     Indication: RHEUMATOID ARTHRITIS
     Dosage: END OF MAR-2014 OR APR-2014
     Route: 042
     Dates: start: 2014
  4. REMICADE [Suspect]
     Indication: RHEUMATOID ARTHRITIS
     Dosage: 3 YEARS PRIOR TO THE DATE OF THIS REPORT
     Route: 042
  5. PREDNISONE [Concomitant]
     Indication: RHEUMATOID ARTHRITIS
     Route: 048
     Dates: start: 1999
  6. ARAVA [Concomitant]
     Indication: RHEUMATOID ARTHRITIS
     Route: 048
     Dates: start: 1999
  7. FOLIC ACID [Concomitant]
     Indication: RHEUMATOID ARTHRITIS
     Route: 048
     Dates: start: 1999
  8. OMEGA 3 [Concomitant]
     Indication: RHEUMATOID ARTHRITIS
     Route: 048
     Dates: start: 1999
  9. CALCIUM [Concomitant]
     Indication: RHEUMATOID ARTHRITIS
     Route: 048
     Dates: start: 1999
  10. CYCLOBENZAPRINE [Concomitant]
     Indication: SLEEP DISORDER
     Route: 048
     Dates: start: 1999

REACTIONS (6)
  - Migraine [Recovered/Resolved]
  - Blood pressure systolic increased [Recovered/Resolved]
  - Musculoskeletal stiffness [Not Recovered/Not Resolved]
  - Myalgia [Recovered/Resolved]
  - Hypotension [Not Recovered/Not Resolved]
  - Fatigue [Not Recovered/Not Resolved]
